FAERS Safety Report 4546547-9 (Version None)
Quarter: 2005Q1

REPORT INFORMATION
  Report Type: 
  Country: None (occurrence: None)
  Receive Date: 20050103
  Receipt Date: 20041210
  Transmission Date: 20050727
  Serious: No
  Sender: FDA-Public Use
  Company Number: JP_041004700

PATIENT
  Age: 62 Year
  Sex: Female
  Weight: 52 kg

DRUGS (5)
  1. EVISTA [Suspect]
     Indication: OSTEOPOROSIS POSTMENOPAUSAL
     Dosage: 60 MGL 1 DAY
     Dates: start: 20040716, end: 20040923
  2. OSTEN (IPRIFLAVONE0 [Concomitant]
  3. ALFAROL (ALFACALCIDOL) [Concomitant]
  4. ASPARA-(ASPARTATE CALCIUM) [Concomitant]
  5. ELCATONIN [Concomitant]

REACTIONS (4)
  - CHEST PAIN [None]
  - FEELING ABNORMAL [None]
  - HEAD DISCOMFORT [None]
  - MUSCULOSKELETAL STIFFNESS [None]
